FAERS Safety Report 13494089 (Version 1)
Quarter: 2017Q2

REPORT INFORMATION
  Report Type: Report from Study
  Country: GB (occurrence: GB)
  Receive Date: 20170428
  Receipt Date: 20170428
  Transmission Date: 20170830
  Serious: Yes (Other)
  Sender: FDA-Public Use
  Company Number: GB-SUN PHARMACEUTICAL INDUSTRIES LTD-2017RR-139059

PATIENT
  Sex: Female

DRUGS (6)
  1. OLANZAPINE. [Suspect]
     Active Substance: OLANZAPINE
     Indication: PSYCHOTIC DISORDER
     Dosage: 20 MG, DAILY
     Route: 065
  2. ARIPIPRAZOLE. [Suspect]
     Active Substance: ARIPIPRAZOLE
     Indication: PSYCHOTIC DISORDER
     Dosage: 20 MG, DAILY
     Route: 065
  3. LEVODOPA [Suspect]
     Active Substance: LEVODOPA
     Indication: MULTIPLE SCLEROSIS
     Dosage: UNK
     Route: 065
  4. ZUCLOPENTHIXOL [Suspect]
     Active Substance: ZUCLOPENTHIXOL
     Indication: PSYCHOTIC DISORDER
     Dosage: 40 MG, DAILY
     Route: 048
  5. RISPERIDONE. [Suspect]
     Active Substance: RISPERIDONE
     Indication: PSYCHOTIC DISORDER
     Dosage: 4 MG, DAILY
     Route: 065
  6. QUETIAPINE. [Suspect]
     Active Substance: QUETIAPINE
     Indication: PSYCHOTIC DISORDER
     Dosage: 400 MG, DAILY
     Route: 065

REACTIONS (4)
  - Drug ineffective [Unknown]
  - Psychotic disorder [Unknown]
  - Extrapyramidal disorder [Unknown]
  - Treatment noncompliance [Unknown]
